FAERS Safety Report 6497123-2 (Version None)
Quarter: 2009Q4

REPORT INFORMATION
  Report Type: 
  Country: None (occurrence: None)
  Receive Date: 20091215
  Receipt Date: 20090325
  Transmission Date: 20100525
  Serious: No
  Sender: FDA-Public Use
  Company Number: A0775341A

PATIENT
  Sex: Male

DRUGS (2)
  1. AVODART [Suspect]
     Indication: BENIGN PROSTATIC HYPERPLASIA
     Dosage: .5MG PER DAY
     Route: 048
     Dates: start: 20081201, end: 20090315
  2. OTHER MEDICATIONS [Concomitant]
     Indication: ILL-DEFINED DISORDER

REACTIONS (1)
  - ILL-DEFINED DISORDER [None]
